FAERS Safety Report 6509041-1 (Version None)
Quarter: 2009Q4

REPORT INFORMATION
  Report Type: 
  Country: None (occurrence: None)
  Receive Date: 20091221
  Receipt Date: 20090902
  Transmission Date: 20100525
  Serious: No
  Sender: FDA-Public Use
  Company Number: US-ASTRAZENECA-2009SE11115

PATIENT
  Age: 61 Year
  Sex: Female
  Weight: 65.8 kg

DRUGS (2)
  1. CRESTOR [Suspect]
     Route: 048
     Dates: start: 20090608, end: 20090801
  2. TRAZODONE HCL [Concomitant]

REACTIONS (9)
  - ASPIRATION [None]
  - ASTHENIA [None]
  - BRADYPHRENIA [None]
  - CHOKING [None]
  - DIZZINESS [None]
  - FALL [None]
  - FATIGUE [None]
  - PAIN [None]
  - TOOTH LOSS [None]
